FAERS Safety Report 5585156-X (Version None)
Quarter: 2008Q1

REPORT INFORMATION
  Report Type: 
  Country: None (occurrence: None)
  Receive Date: 20080104
  Receipt Date: 20080104
  Transmission Date: 20080703
  Serious: Yes (Life-Threatening)
  Sender: FDA-Public Use
  Company Number: None

PATIENT
  Age: 44 Year
  Sex: Female
  Weight: 115.6672 kg

DRUGS (1)
  1. ORLISTAT -ALLI- 60 MG GLAXOSMITHKLINE [Suspect]
     Indication: WEIGHT CONTROL
     Dosage: 60 MG THREE TIMES DAILY PO
     Route: 048
     Dates: start: 20071001, end: 20071230

REACTIONS (1)
  - ACUTE HEPATIC FAILURE [None]
